FAERS Safety Report 7981891-4 (Version None)
Quarter: 2011Q4

REPORT INFORMATION
  Report Type: 
  Country: None (occurrence: None)
  Receive Date: 20111215
  Receipt Date: 20111208
  Transmission Date: 20120403
  Serious: Yes (Hospitalization, Other)
  Sender: FDA-Public Use
  Company Number: US-JNJFOC-20111204357

PATIENT
  Sex: Male
  Weight: 123.38 kg

DRUGS (2)
  1. WELLBUTRIN [Concomitant]
     Indication: TOBACCO USER
     Route: 065
  2. DURAGESIC-100 [Suspect]
     Indication: PRODUCT USED FOR UNKNOWN INDICATION
     Route: 062
     Dates: start: 20040101, end: 20040101

REACTIONS (6)
  - CHEST DISCOMFORT [None]
  - LOSS OF CONSCIOUSNESS [None]
  - CORONARY ARTERY OCCLUSION [None]
  - DRUG HYPERSENSITIVITY [None]
  - ASTHENIA [None]
  - ARRHYTHMIA [None]
